FAERS Safety Report 25330053 (Version 1)
Quarter: 2025Q2

REPORT INFORMATION
  Report Type: Spontaneous
  Country: PL (occurrence: PL)
  Receive Date: 20250519
  Receipt Date: 20250519
  Transmission Date: 20250717
  Serious: Yes (Hospitalization)
  Sender: AMGEN
  Company Number: PL-AMGEN-POLSP2025094019

PATIENT
  Age: 59 Year
  Sex: Male

DRUGS (1)
  1. NPLATE [Suspect]
     Active Substance: ROMIPLOSTIM
     Indication: Product used for unknown indication
     Dosage: 80 MICROGRAM, Q4WK
     Route: 058

REACTIONS (4)
  - COVID-19 [Unknown]
  - Lung abscess [Unknown]
  - Empyema [Unknown]
  - Fungaemia [Unknown]
